FAERS Safety Report 22608854 (Version 1)
Quarter: 2023Q2

REPORT INFORMATION
  Report Type: Report from Study
  Country: ES (occurrence: ES)
  Receive Date: 20230616
  Receipt Date: 20230616
  Transmission Date: 20230722
  Serious: Yes (Hospitalization)
  Sender: FDA-Public Use
  Company Number: ES-JNJFOC-20230447775

PATIENT
  Age: 80 Year
  Sex: Male

DRUGS (50)
  1. DARZALEX [Suspect]
     Active Substance: DARATUMUMAB
     Indication: Plasma cell myeloma
     Route: 058
     Dates: start: 20220922
  2. DARZALEX [Suspect]
     Active Substance: DARATUMUMAB
     Route: 058
     Dates: start: 20220929
  3. BORTEZOMIB [Suspect]
     Active Substance: BORTEZOMIB
     Indication: Plasma cell myeloma
     Route: 065
  4. LENALIDOMIDE [Suspect]
     Active Substance: LENALIDOMIDE
     Indication: Plasma cell myeloma
     Route: 065
     Dates: start: 20221005
  5. DEXAMETHASONE [Suspect]
     Active Substance: DEXAMETHASONE
     Indication: Plasma cell myeloma
     Route: 065
     Dates: start: 20221005
  6. PIPERACILLIN AND TAZOBACTAM [Concomitant]
     Active Substance: PIPERACILLIN SODIUM\TAZOBACTAM SODIUM
     Route: 042
     Dates: start: 20221005, end: 20221005
  7. PIPERACILLIN AND TAZOBACTAM [Concomitant]
     Active Substance: PIPERACILLIN SODIUM\TAZOBACTAM SODIUM
     Route: 042
     Dates: start: 20221005, end: 20221009
  8. SODIUM CHLORIDE [Concomitant]
     Active Substance: SODIUM CHLORIDE
     Route: 042
     Dates: start: 20221004, end: 20221004
  9. SODIUM CHLORIDE [Concomitant]
     Active Substance: SODIUM CHLORIDE
     Route: 042
     Dates: start: 20221005, end: 20221005
  10. ACETAMINOPHEN [Concomitant]
     Active Substance: ACETAMINOPHEN
     Dosage: 1G/100ML VIAL
     Route: 042
     Dates: start: 20221005
  11. ACETAMINOPHEN [Concomitant]
     Active Substance: ACETAMINOPHEN
     Dosage: 1G/100ML VIAL
     Route: 042
     Dates: start: 20221004, end: 20221004
  12. ACETAMINOPHEN [Concomitant]
     Active Substance: ACETAMINOPHEN
     Dosage: 1G/100ML VIAL
     Route: 042
     Dates: start: 20221005
  13. ACETAMINOPHEN [Concomitant]
     Active Substance: ACETAMINOPHEN
     Dosage: 1G/100ML VIAL
     Route: 042
     Dates: start: 20221019
  14. OMEPRAZOLE [Concomitant]
     Active Substance: OMEPRAZOLE
     Route: 048
     Dates: start: 20221005, end: 20221013
  15. OMEPRAZOLE [Concomitant]
     Active Substance: OMEPRAZOLE
     Route: 048
     Dates: start: 20221013
  16. THIAMINE [Concomitant]
     Active Substance: THIAMINE
     Route: 048
     Dates: start: 20221005, end: 20221005
  17. THIAMINE [Concomitant]
     Active Substance: THIAMINE
     Route: 048
     Dates: start: 20221005
  18. ENOXAPARIN SODIUM [Concomitant]
     Active Substance: ENOXAPARIN SODIUM
     Route: 058
     Dates: start: 20221005
  19. ENOXAPARIN SODIUM [Concomitant]
     Active Substance: ENOXAPARIN SODIUM
     Route: 058
     Dates: start: 20221005, end: 20221011
  20. GLUCOSALINE [Concomitant]
     Route: 042
     Dates: start: 20221005
  21. GLUCOSALINE [Concomitant]
     Route: 042
     Dates: start: 20221005
  22. ACYCLOVIR [Concomitant]
     Active Substance: ACYCLOVIR
     Route: 048
     Dates: start: 20221005, end: 20221005
  23. ADVENTAN [Concomitant]
     Dosage: 1 APPLICATION
     Route: 061
     Dates: start: 20221010
  24. ALMAGATE [Concomitant]
     Active Substance: ALMAGATE
     Route: 048
     Dates: start: 20221011, end: 20221011
  25. ATROVENT [Concomitant]
     Active Substance: IPRATROPIUM BROMIDE
     Route: 065
     Dates: start: 20221013
  26. AZITHROMYCIN [Concomitant]
     Active Substance: AZITHROMYCIN
     Route: 048
     Dates: start: 20221017, end: 20221018
  27. AZITHROMYCIN [Concomitant]
     Active Substance: AZITHROMYCIN
     Route: 042
     Dates: start: 20221014, end: 20221016
  28. CITALOPRAM [Concomitant]
     Active Substance: CITALOPRAM HYDROBROMIDE
     Route: 048
     Dates: start: 20221005
  29. CITALOPRAM [Concomitant]
     Active Substance: CITALOPRAM HYDROBROMIDE
     Route: 048
     Dates: start: 20221005, end: 20221005
  30. CLOTRIMAZOLE [Concomitant]
     Active Substance: CLOTRIMAZOLE
     Route: 061
     Dates: start: 20221006, end: 20221011
  31. DEXAMETHASONE [Concomitant]
     Active Substance: DEXAMETHASONE
     Route: 048
     Dates: start: 20221019, end: 20221019
  32. LORMETAZEPAM [Concomitant]
     Active Substance: LORMETAZEPAM
     Route: 048
  33. MEROPENEM [Concomitant]
     Active Substance: MEROPENEM
     Route: 042
     Dates: start: 20221009, end: 20221017
  34. METHYLPREDNISOLONE [Concomitant]
     Active Substance: METHYLPREDNISOLONE
     Route: 042
     Dates: start: 20221013, end: 20221017
  35. MONTELUKAST [Concomitant]
     Active Substance: MONTELUKAST SODIUM
     Route: 048
     Dates: start: 20221005, end: 20221005
  36. MONTELUKAST [Concomitant]
     Active Substance: MONTELUKAST SODIUM
     Route: 048
     Dates: start: 20221019
  37. METAMIZOLE MAGNESIUM [Concomitant]
     Active Substance: METAMIZOLE MAGNESIUM
     Route: 042
     Dates: start: 20221012
  38. CALCIUM PIDOLATE\CHOLECALCIFEROL [Concomitant]
     Active Substance: CALCIUM PIDOLATE\CHOLECALCIFEROL
     Dates: start: 20221005
  39. TAPENTADOL HYDROCHLORIDE [Concomitant]
     Active Substance: TAPENTADOL HYDROCHLORIDE
     Route: 048
     Dates: start: 20221005, end: 20221005
  40. PHOSPHATES [SODIUM PHOSPHATE;SODIUM PHOSPHATE MONOBASIC (ANHYDROUS)] [Concomitant]
     Route: 048
     Dates: start: 20221010
  41. POLARAMINE [Concomitant]
     Active Substance: DEXCHLORPHENIRAMINE MALEATE
     Route: 048
     Dates: start: 20221019, end: 20221019
  42. POTASSIUM [Concomitant]
     Active Substance: POTASSIUM
     Route: 048
     Dates: start: 20221010
  43. POTASSIUM [Concomitant]
     Active Substance: POTASSIUM
     Route: 048
     Dates: start: 20221008, end: 20221010
  44. SEREPROSTAT [Concomitant]
     Route: 048
     Dates: start: 20221005
  45. SUCRALFATE [Concomitant]
     Active Substance: SUCRALFATE
     Route: 048
     Dates: start: 20221015
  46. SUCRALFATE [Concomitant]
     Active Substance: SUCRALFATE
     Route: 048
     Dates: start: 20221011, end: 20221013
  47. SUCRALFATE [Concomitant]
     Active Substance: SUCRALFATE
     Route: 048
     Dates: start: 20221013, end: 20221015
  48. VANCOMYCIN [Concomitant]
     Active Substance: VANCOMYCIN
     Route: 042
     Dates: start: 20221010, end: 20221014
  49. VANCOMYCIN [Concomitant]
     Active Substance: VANCOMYCIN
     Route: 042
     Dates: start: 20221010, end: 20221010
  50. ZOLEDRONIC ACID [Concomitant]
     Active Substance: ZOLEDRONIC ACID
     Route: 042
     Dates: start: 20221019, end: 20221019

REACTIONS (2)
  - Pneumonia [Recovered/Resolved]
  - Gastroenteritis [Recovered/Resolved]

NARRATIVE: CASE EVENT DATE: 20221004
